FAERS Safety Report 6237141-2 (Version None)
Quarter: 2009Q2

REPORT INFORMATION
  Report Type: 
  Country: None (occurrence: None)
  Receive Date: 20090619
  Receipt Date: 20090423
  Transmission Date: 20091009
  Serious: No
  Sender: FDA-Public Use
  Company Number: US-ASTRAZENECA-2009UW10281

PATIENT
  Age: 43 Year
  Sex: Female

DRUGS (4)
  1. SYMBICORT [Suspect]
     Dosage: 160/4.5 MCG
     Route: 055
  2. SYMBICORT [Suspect]
     Dosage: 80/4.5 MCG
     Route: 055
  3. METFORMIN HCL [Concomitant]
  4. BYSTOLIC [Concomitant]

REACTIONS (1)
  - OEDEMA PERIPHERAL [None]
